FAERS Safety Report 18286578 (Version 1)
Quarter: 2020Q3

REPORT INFORMATION
  Report Type: Spontaneous
  Country: CN (occurrence: CN)
  Receive Date: 20200920
  Receipt Date: 20200920
  Transmission Date: 20201103
  Serious: Yes (Other)
  Sender: FDA-Public Use
  Company Number: CN-ROCHE-2680447

PATIENT
  Age: 71 Year
  Sex: Female
  Weight: 50 kg

DRUGS (4)
  1. BEVACIZUMAB. [Suspect]
     Active Substance: BEVACIZUMAB
     Indication: RECTAL CANCER
     Dosage: ON DAY 1
     Route: 041
     Dates: start: 20200902
  2. OXALIPLATIN. [Suspect]
     Active Substance: OXALIPLATIN
     Indication: RECTAL CANCER
     Route: 041
     Dates: start: 20200902
  3. XELODA [Suspect]
     Active Substance: CAPECITABINE
     Indication: RECTAL CANCER
     Dosage: ON DAY 1
     Route: 048
     Dates: start: 20200902
  4. MANNITOL. [Suspect]
     Active Substance: MANNITOL
     Indication: RECTAL CANCER
     Route: 041
     Dates: start: 20200902

REACTIONS (2)
  - Gastrointestinal disorder [Recovering/Resolving]
  - Myelosuppression [Recovering/Resolving]

NARRATIVE: CASE EVENT DATE: 20200905
